FAERS Safety Report 16485400 (Version 1)
Quarter: 2019Q2

REPORT INFORMATION
  Report Type: Spontaneous
  Country: FR (occurrence: FR)
  Receive Date: 20190627
  Receipt Date: 20190627
  Transmission Date: 20190711
  Serious: Yes (Hospitalization)
  Sender: FDA-Public Use
  Company Number: FR-MYLANLABS-2019M1059597

PATIENT
  Age: 79 Year
  Sex: Male
  Weight: 56 kg

DRUGS (17)
  1. CARBOPLATIN. [Suspect]
     Active Substance: CARBOPLATIN
     Indication: OESOPHAGEAL SQUAMOUS CELL CARCINOMA METASTATIC
     Dosage: 408.35 MILLIGRAM, QW
     Route: 041
     Dates: start: 20181203, end: 20181219
  2. RANITIDINE. [Suspect]
     Active Substance: RANITIDINE
     Indication: PREMEDICATION
     Dosage: 50 MILLIGRAM, QW
     Route: 041
     Dates: start: 20181203, end: 20181219
  3. HEPARINE SODIQUE [Suspect]
     Active Substance: HEPARIN SODIUM
     Indication: ATRIAL FIBRILLATION
     Dosage: 25000 INTERNATIONAL UNIT, QD
     Route: 042
     Dates: start: 20181222, end: 20181225
  4. HUMALOG [Concomitant]
     Active Substance: INSULIN LISPRO
  5. EMEND [Suspect]
     Active Substance: APREPITANT
     Indication: PROPHYLAXIS OF NAUSEA AND VOMITING
     Dosage: 1 DOSAGE FORM, QW
     Route: 048
     Dates: start: 20181203, end: 20181219
  6. TOUJEO [Concomitant]
     Active Substance: INSULIN GLARGINE
     Dosage: UNK
  7. PERINDOPRIL [Concomitant]
     Active Substance: PERINDOPRIL
     Dosage: UNK
  8. METFORMINE                         /00082701/ [Concomitant]
     Active Substance: METFORMIN HYDROCHLORIDE
     Dosage: UNK
  9. PACLITAXEL. [Suspect]
     Active Substance: PACLITAXEL
     Indication: OESOPHAGEAL SQUAMOUS CELL CARCINOMA METASTATIC
     Dosage: 129.6 MILLIGRAM, QW
     Route: 041
     Dates: start: 20181203, end: 20181219
  10. TAMSULOSINE                        /01280301/ [Concomitant]
     Active Substance: TAMSULOSIN
     Dosage: UNK
  11. AMLODIPINE [Concomitant]
     Active Substance: AMLODIPINE BESYLATE
     Dosage: UNK
  12. ONDANSETRON [Suspect]
     Active Substance: ONDANSETRON
     Indication: PROPHYLAXIS OF NAUSEA AND VOMITING
     Dosage: 8 MILLIGRAM, QW
     Route: 042
     Dates: start: 20181203, end: 20181219
  13. DEXCHLORPHENIRAMIN /00043701/ [Suspect]
     Active Substance: DEXCHLORPHENIRAMINE
     Indication: PROPHYLAXIS
     Dosage: 5 MILLIGRAM, QW
     Route: 042
     Dates: start: 20181203, end: 20181219
  14. SIMVASTATINE [Concomitant]
     Active Substance: SIMVASTATIN
     Dosage: UNK
  15. ESIDREX [Concomitant]
     Active Substance: HYDROCHLOROTHIAZIDE
     Dosage: UNK
  16. METHYLPREDNISOLONE. [Suspect]
     Active Substance: METHYLPREDNISOLONE
     Indication: PREMEDICATION
     Dosage: 55 MILLIGRAM, QW
     Route: 041
     Dates: start: 20181203, end: 20181219
  17. PARACETAMOL [Concomitant]
     Active Substance: ACETAMINOPHEN
     Dosage: UNK

REACTIONS (2)
  - Thrombocytopenia [Not Recovered/Not Resolved]
  - Anaemia [Not Recovered/Not Resolved]

NARRATIVE: CASE EVENT DATE: 20181219
